FAERS Safety Report 8052642 (Version 9)
Quarter: 2013Q4

REPORT INFORMATION
  Report Type: Spontaneous
  Country: US (occurrence: US)
  Receive Date: 20110725
  Receipt Date: 20131002
  Transmission Date: 20140711
  Serious: Yes (Hospitalization, Congenital Anomaly, Other)
  Sender: FDA-Public Use
  Company Number: US-PFIZER INC-2011159758

PATIENT
  Sex: Male
  Weight: 3.2 kg

DRUGS (19)
  1. ZOLOFT [Suspect]
     Indication: DEPRESSION
     Dosage: UNK
     Route: 064
     Dates: start: 2004, end: 2009
  2. ZOLOFT [Suspect]
     Indication: ANXIETY
     Dosage: 50 MG, 1X/DAY TRIAL OF SAMPLES
     Route: 064
     Dates: start: 20040917
  3. ZOLOFT [Suspect]
     Dosage: 100 MG, UNK
     Route: 064
     Dates: start: 20070118
  4. ZOLOFT [Suspect]
     Dosage: 100 MG, 1X/DAY
     Route: 064
     Dates: start: 20070204
  5. SERTRALINE HCL [Suspect]
     Dosage: UNK
     Route: 064
     Dates: start: 2004, end: 2009
  6. KLONOPIN [Concomitant]
     Dosage: 1 MG 30 TABLETS, HALF TO ONE TABLET, AS NEEDED
     Route: 064
     Dates: start: 20070204
  7. BUSPAR [Concomitant]
     Dosage: ONE AND HALF TABLETS TWICE DAILY AND INCREASED TO 2 TABLETS TWICE DAILY.
     Route: 064
  8. LORTAB [Concomitant]
     Dosage: UNK
     Route: 064
  9. ONDANSETRON [Concomitant]
     Dosage: UNK
     Route: 064
  10. PROMETHAZINE [Concomitant]
     Dosage: UNK
     Route: 064
  11. MACROBID [Concomitant]
     Dosage: UNK
     Route: 064
  12. PERCOCET [Concomitant]
     Dosage: UNK
     Route: 064
  13. CLONAZEPAM [Concomitant]
     Dosage: UNK
     Route: 064
  14. HYDROCODONE W/ACETAMINOPHEN [Concomitant]
     Dosage: UNK
     Route: 064
  15. MEPROZINE [Concomitant]
     Dosage: UNK
     Route: 064
  16. NITROFURANTOIN [Concomitant]
     Dosage: UNK
     Route: 064
  17. USEPT [Concomitant]
     Dosage: UNK
     Route: 064
  18. OXYCODONE [Concomitant]
     Dosage: UNK
     Route: 064
  19. URISED [Concomitant]
     Dosage: UNK
     Route: 064

REACTIONS (11)
  - Maternal exposure timing unspecified [Unknown]
  - Craniosynostosis [Recovering/Resolving]
  - Failure to thrive [Unknown]
  - Scaphocephaly [Unknown]
  - Congenital anomaly [Unknown]
  - Developmental delay [Unknown]
  - Speech disorder developmental [Recovering/Resolving]
  - Jaundice neonatal [Unknown]
  - Gait disturbance [Unknown]
  - Cardiac disorder [Unknown]
  - Premature baby [Unknown]
